FAERS Safety Report 6498161-6 (Version None)
Quarter: 2009Q4

REPORT INFORMATION
  Report Type: 
  Country: None (occurrence: None)
  Receive Date: 20091215
  Receipt Date: 20091214
  Transmission Date: 20100525
  Serious: Yes (Hospitalization)
  Sender: FDA-Public Use
  Company Number: A0834948A

PATIENT
  Age: 62 Year
  Sex: Female

DRUGS (4)
  1. NICORETTE [Suspect]
     Indication: SMOKING CESSATION THERAPY
  2. NICODERM CQ [Suspect]
     Indication: SMOKING CESSATION THERAPY
  3. NICODERM CQ [Suspect]
     Indication: SMOKING CESSATION THERAPY
  4. NICODERM CQ [Suspect]
     Indication: SMOKING CESSATION THERAPY

REACTIONS (12)
  - APPLICATION SITE DISCHARGE [None]
  - APPLICATION SITE EROSION [None]
  - APPLICATION SITE IRRITATION [None]
  - APPLICATION SITE PAPULES [None]
  - APPLICATION SITE PARAESTHESIA [None]
  - APPLICATION SITE PERSPIRATION [None]
  - APPLICATION SITE PRURITUS [None]
  - APPLICATION SITE RASH [None]
  - APPLICATION SITE REACTION [None]
  - DRUG ADMINISTRATION ERROR [None]
  - HYPERSENSITIVITY [None]
  - PALPITATIONS [None]
